FAERS Safety Report 7146430-9 (Version None)
Quarter: 2010Q4

REPORT INFORMATION
  Report Type: 
  Country: None (occurrence: None)
  Receive Date: 20101208
  Receipt Date: 20100903
  Transmission Date: 20110411
  Serious: No
  Sender: FDA-Public Use
  Company Number: US-BRISTOL-MYERS SQUIBB COMPANY-15272040

PATIENT
  Age: 67 Year
  Sex: Male

DRUGS (4)
  1. PRAVACHOL [Suspect]
     Dates: start: 20010201
  2. IMDUR [Concomitant]
  3. TENORMIN [Concomitant]
  4. COZAAR [Concomitant]

REACTIONS (2)
  - ABNORMAL BEHAVIOUR [None]
  - FATIGUE [None]
